FAERS Safety Report 6071075-1 (Version None)
Quarter: 2009Q1

REPORT INFORMATION
  Report Type: 
  Country: None (occurrence: None)
  Receive Date: 20090209
  Receipt Date: 20080918
  Transmission Date: 20090719
  Serious: No
  Sender: FDA-Public Use
  Company Number: A0748147A

PATIENT
  Age: 53 Year
  Sex: Female

DRUGS (4)
  1. PAXIL CR [Suspect]
     Dosage: 25MG PER DAY
     Route: 048
     Dates: start: 20010101
  2. ATENOLOL [Concomitant]
  3. LEVOTHYROXINE SODIUM [Concomitant]
  4. HYDROCHLOROTHIAZIDE [Concomitant]

REACTIONS (3)
  - FEELING ABNORMAL [None]
  - PARAESTHESIA [None]
  - PERFORMANCE STATUS DECREASED [None]
